FAERS Safety Report 16934585 (Version 1)
Quarter: 2019Q4

REPORT INFORMATION
  Report Type: Spontaneous
  Country: US (occurrence: US)
  Receive Date: 20191017
  Receipt Date: 20191017
  Transmission Date: 20200122
  Serious: No
  Sender: FDA-Public Use
  Company Number: None

PATIENT
  Age: 60 Year
  Sex: Male
  Weight: 74.25 kg

DRUGS (1)
  1. KRATOM [Suspect]
     Active Substance: HERBALS\MITRAGYNINE
     Route: 048

REACTIONS (6)
  - Loss of employment [None]
  - Drug dependence [None]
  - Impaired reasoning [None]
  - Aggression [None]
  - Anger [None]
  - Economic problem [None]

NARRATIVE: CASE EVENT DATE: 20190701
